FAERS Safety Report 8570189-1 (Version None)
Quarter: 2012Q3

REPORT INFORMATION
  Report Type: 
  Country: None (occurrence: None)
  Receive Date: 20120803
  Receipt Date: 20120723
  Transmission Date: 20120928
  Serious: Yes (Hospitalization)
  Sender: FDA-Public Use
  Company Number: CHPA2012DE015998

PATIENT
  Age: 40 Year
  Sex: Male

DRUGS (2)
  1. IBUPROFEN [Suspect]
     Indication: HEADACHE
     Dosage: 600 MG, UNK
     Route: 048
     Dates: start: 20111026, end: 20111027
  2. IBUPROFEN [Suspect]
     Dosage: UNK, UNK
     Route: 048
     Dates: start: 20111208

REACTIONS (3)
  - ATAXIA [None]
  - DYSPHAGIA [None]
  - NYSTAGMUS [None]
